FAERS Safety Report 19940830 (Version 1)
Quarter: 2021Q4

REPORT INFORMATION
  Report Type: Spontaneous
  Country: US (occurrence: US)
  Receive Date: 20211011
  Receipt Date: 20211011
  Transmission Date: 20220303
  Serious: No
  Sender: FDA-Public Use
  Company Number: US-GLENMARK PHARMACEUTICALS-2021GMK066709

PATIENT

DRUGS (5)
  1. OXCARBAZEPINE [Suspect]
     Active Substance: OXCARBAZEPINE
     Indication: Pain
     Dosage: 2 DOSAGE FORM, QD
     Route: 048
     Dates: start: 20210525, end: 2021
  2. OXCARBAZEPINE [Suspect]
     Active Substance: OXCARBAZEPINE
     Dosage: 2 DOSAGE FORM, BID
     Route: 048
     Dates: start: 2021, end: 202106
  3. IBRANCE [Suspect]
     Active Substance: PALBOCICLIB
     Indication: Breast cancer metastatic
     Dosage: 125 MILLIGRAM
     Route: 048
     Dates: start: 20180909
  4. IBRANCE [Suspect]
     Active Substance: PALBOCICLIB
     Dosage: 75 MILLIGRAM, THREE TIMES IN A WEEK
     Route: 048
  5. LETROZOLE [Concomitant]
     Active Substance: LETROZOLE
     Indication: Breast cancer metastatic
     Dosage: 2.5 MILLIGRAM, OD
     Route: 048
     Dates: start: 201809

REACTIONS (3)
  - Blood chloride decreased [Recovering/Resolving]
  - Product use in unapproved indication [Unknown]
  - Blood sodium decreased [Recovering/Resolving]

NARRATIVE: CASE EVENT DATE: 20210525
